FAERS Safety Report 9867544 (Version 1)
Quarter: 2014Q1

REPORT INFORMATION
  Report Type: Spontaneous
  Country: US (occurrence: US)
  Receive Date: 20140204
  Receipt Date: 20140204
  Transmission Date: 20141002
  Serious: No
  Sender: FDA-Public Use
  Company Number: US-GALDERMA-US13001592

PATIENT
  Age: 19 Year
  Sex: Female

DRUGS (4)
  1. EPIDUO [Suspect]
     Indication: ACNE
     Route: 061
     Dates: start: 20130511
  2. CETAPHIL DAILY FACIAL CLEANSER [Suspect]
     Indication: THERAPEUTIC SKIN CARE TOPICAL
     Route: 061
     Dates: start: 20130518, end: 20130520
  3. CETAPHIL RESTORADERM MOISTURIZER [Suspect]
     Indication: DRY SKIN PROPHYLAXIS
     Route: 061
     Dates: start: 20130518, end: 20130520
  4. SOLODYN [Suspect]
     Indication: ACNE
     Route: 048
     Dates: start: 20130511

REACTIONS (4)
  - Scab [Not Recovered/Not Resolved]
  - Skin burning sensation [Recovered/Resolved]
  - Dry skin [Not Recovered/Not Resolved]
  - Skin exfoliation [Not Recovered/Not Resolved]
